FAERS Safety Report 17343915 (Version 1)
Quarter: 2020Q1

REPORT INFORMATION
  Report Type: Spontaneous
  Country: ZA (occurrence: ZA)
  Receive Date: 20200129
  Receipt Date: 20200129
  Transmission Date: 20200409
  Serious: Yes (Life-Threatening)
  Sender: FDA-Public Use
  Company Number: NVSC2019ZA086795

PATIENT
  Age: 50 Year
  Sex: Female

DRUGS (2)
  1. CALCIUM GLUCONATE. [Suspect]
     Active Substance: CALCIUM GLUCONATE
     Indication: HYPERKALAEMIA
     Dosage: UNK
     Route: 065
  2. SULFAMETOXAZOL/TRIMETOPRIM [Concomitant]
     Active Substance: SULFAMETHOXAZOLE\TRIMETHOPRIM
     Indication: PNEUMOCYSTIS JIROVECII PNEUMONIA
     Dosage: UNK (1600 MG/320 MG 6-HOURLY)
     Route: 065

REACTIONS (2)
  - Hyperkalaemia [Unknown]
  - Product use in unapproved indication [Unknown]
